FAERS Safety Report 7968054-3 (Version None)
Quarter: 2011Q4

REPORT INFORMATION
  Report Type: 
  Country: None (occurrence: None)
  Receive Date: 20111209
  Receipt Date: 20111202
  Transmission Date: 20120403
  Serious: Yes (Death, Hospitalization, Other)
  Sender: FDA-Public Use
  Company Number: US-ACTELION-A-US2010-35808

PATIENT

DRUGS (9)
  1. HYDROXYCHLOROQUINE [Concomitant]
     Dosage: UNK
     Route: 048
     Dates: start: 20080101
  2. TRACLEER [Suspect]
     Dosage: 62.5 MG, BID
     Route: 048
     Dates: start: 20061001, end: 20061101
  3. CALCIUM CHANNEL BLOCKERS [Concomitant]
  4. TRACLEER [Suspect]
     Indication: PULMONARY ARTERIAL HYPERTENSION
     Dosage: 125 MG, BID
     Route: 048
     Dates: start: 20100304, end: 20111123
  5. TRACLEER [Suspect]
     Dosage: 125 MG, BID
     Route: 048
     Dates: start: 20061101, end: 20100201
  6. TRACLEER [Suspect]
     Dosage: 62.5 MG, BID
     Route: 048
     Dates: start: 20100201, end: 20100303
  7. AZATHIOPRINE [Concomitant]
     Dosage: UNK
     Route: 048
     Dates: start: 20080101
  8. REVATIO [Concomitant]
  9. WARFARIN SODIUM [Concomitant]

REACTIONS (23)
  - DEATH [None]
  - PNEUMONIA [None]
  - CARDIAC FAILURE CONGESTIVE [None]
  - THROMBOCYTOPENIA [None]
  - LIVER INJURY [None]
  - HEPATIC CONGESTION [None]
  - ALANINE AMINOTRANSFERASE INCREASED [None]
  - DIARRHOEA [None]
  - COUGH [None]
  - CONFUSIONAL STATE [None]
  - NAUSEA [None]
  - DISSEMINATED INTRAVASCULAR COAGULATION [None]
  - HYPOTENSION [None]
  - INCREASED UPPER AIRWAY SECRETION [None]
  - OEDEMA PERIPHERAL [None]
  - FLUID OVERLOAD [None]
  - RIGHT VENTRICULAR FAILURE [None]
  - DYSPNOEA [None]
  - HYPOXIA [None]
  - ASPARTATE AMINOTRANSFERASE INCREASED [None]
  - VOMITING [None]
  - ORTHOPNOEA [None]
  - SEPSIS [None]
